FAERS Safety Report 4842331-7 (Version None)
Quarter: 2005Q4

REPORT INFORMATION
  Report Type: 
  Country: None (occurrence: None)
  Receive Date: 20051129
  Receipt Date: 20051116
  Transmission Date: 20060501
  Serious: Yes (Hospitalization, Other)
  Sender: FDA-Public Use
  Company Number: 2005154390

PATIENT
  Age: 41 Year
  Sex: Male

DRUGS (5)
  1. LYRICA [Suspect]
     Indication: EPILEPSY
     Dosage: 150 MG (75 MG, 2 IN 1 D), ORAL
     Route: 048
  2. LAMOTRIGINE [Concomitant]
  3. CLOBAZAM (CLOBAZAM) [Concomitant]
  4. PRIMIDONE [Concomitant]
  5. TOPIRAMATE [Concomitant]

REACTIONS (1)
  - COLONIC PSEUDO-OBSTRUCTION [None]
